FAERS Safety Report 22124096 (Version 2)
Quarter: 2023Q1

REPORT INFORMATION
  Report Type: Spontaneous
  Country: JP (occurrence: JP)
  Receive Date: 20230322
  Receipt Date: 20230327
  Transmission Date: 20230417
  Serious: No
  Sender: FDA-Public Use
  Company Number: JP-002147023-NVSJ2023JP004988

PATIENT

DRUGS (1)
  1. TERBINAFINE [Suspect]
     Active Substance: TERBINAFINE
     Indication: Product used for unknown indication
     Dosage: 125 MG
     Route: 048

REACTIONS (2)
  - Product colour issue [Unknown]
  - Wrong technique in product usage process [Unknown]
